FAERS Safety Report 4736410-2 (Version None)
Quarter: 2005Q3

REPORT INFORMATION
  Report Type: 
  Country: None (occurrence: None)
  Receive Date: 20050802
  Receipt Date: 20050715
  Transmission Date: 20060218
  Serious: Yes (Hospitalization)
  Sender: FDA-Public Use
  Company Number: ACO_0170_2005

PATIENT

DRUGS (2)
  1. TERNELIN [Suspect]
     Dosage: 20 TAB ONCE PO
     Route: 048
  2. ALCOHOL [Suspect]

REACTIONS (6)
  - BLOOD PRESSURE SYSTOLIC DECREASED [None]
  - COMA [None]
  - INTENTIONAL MISUSE [None]
  - INTENTIONAL SELF-INJURY [None]
  - OVERDOSE [None]
  - SOMNOLENCE [None]
